FAERS Safety Report 19170012 (Version 1)
Quarter: 2021Q2

REPORT INFORMATION
  Report Type: Spontaneous
  Country: US (occurrence: US)
  Receive Date: 20210422
  Receipt Date: 20210422
  Transmission Date: 20210717
  Serious: Yes (Other)
  Sender: FDA-Public Use
  Company Number: US-FRESENIUS KABI-FK202104096

PATIENT
  Age: 23 Year
  Sex: Female

DRUGS (2)
  1. ETOPOSIDE (MANUFACTURER UNKNOWN) [Suspect]
     Active Substance: ETOPOSIDE
     Indication: PANCREATOBLASTOMA
     Dosage: 750 MG/M2 Q 24 H FOR 3 DOSES
     Route: 065
  2. CARBOPLATIN (MANUFACTURER UNKNOWN) [Suspect]
     Active Substance: CARBOPLATIN
     Indication: PANCREATOBLASTOMA
     Dosage: 750 MG/M2 Q 24 H FOR 3 DOSES; HIGH DOSE CARBOPLATIN
     Route: 065

REACTIONS (7)
  - Mucosal inflammation [Unknown]
  - Dysuria [Unknown]
  - Fatigue [Unknown]
  - Febrile neutropenia [Unknown]
  - Transaminases increased [Unknown]
  - Alopecia [Unknown]
  - Appendicitis [Unknown]
